FAERS Safety Report 23671530 (Version 1)
Quarter: 2024Q1

REPORT INFORMATION
  Report Type: Spontaneous
  Country: DE (occurrence: DE)
  Receive Date: 20240326
  Receipt Date: 20240326
  Transmission Date: 20240410
  Serious: Yes (Hospitalization, Other)
  Sender: FDA-Public Use
  Company Number: DE-002147023-NVSC2024DE029737

PATIENT
  Age: 70 Year
  Sex: Female

DRUGS (1)
  1. LUTATHERA [Suspect]
     Active Substance: LUTETIUM OXODOTREOTIDE LU-177
     Indication: Product used for unknown indication
     Dosage: UNK, (7400)
     Route: 065
     Dates: start: 20231127

REACTIONS (5)
  - Neuroendocrine tumour [Recovered/Resolved with Sequelae]
  - Malignant neoplasm progression [Recovered/Resolved with Sequelae]
  - General physical health deterioration [Unknown]
  - Pyrexia [Unknown]
  - Anaemia [Unknown]

NARRATIVE: CASE EVENT DATE: 20231201
